FAERS Safety Report 21768666 (Version 1)
Quarter: 2022Q4

REPORT INFORMATION
  Report Type: Spontaneous
  Country: US (occurrence: US)
  Receive Date: 20221222
  Receipt Date: 20221222
  Transmission Date: 20230113
  Serious: No
  Sender: FDA-Public Use
  Company Number: US-009507513-2211USA009922

PATIENT
  Age: 64 Year
  Sex: Male

DRUGS (4)
  1. CANCIDAS [Suspect]
     Active Substance: CASPOFUNGIN ACETATE
     Indication: Phaeohyphomycosis
     Dosage: UNK
  2. NOXAFIL [Suspect]
     Active Substance: POSACONAZOLE
     Indication: Phaeohyphomycosis
     Dosage: UNK
     Route: 048
  3. ITRACONAZOLE [Suspect]
     Active Substance: ITRACONAZOLE
     Indication: Phaeohyphomycosis
     Dosage: UNK
  4. AMPHOTERICIN B [Suspect]
     Active Substance: AMPHOTERICIN B
     Indication: Phaeohyphomycosis
     Dosage: UNK

REACTIONS (1)
  - Product use in unapproved indication [Unknown]
